FAERS Safety Report 10180153 (Version 1)
Quarter: 2014Q2

REPORT INFORMATION
  Report Type: Spontaneous
  Country: US (occurrence: US)
  Receive Date: 20140519
  Receipt Date: 20140519
  Transmission Date: 20141212
  Serious: No
  Sender: FDA-Public Use
  Company Number: US-AMGEN INC.-USASP2013077723

PATIENT
  Age: 66 Year
  Sex: Female

DRUGS (5)
  1. PROLIA [Suspect]
     Indication: OSTEOPOROSIS POSTMENOPAUSAL
     Dosage: 60 MG, UNK
     Route: 065
     Dates: start: 2012
  2. CALCIUM                            /00060701/ [Concomitant]
     Dosage: 1200 MG, UNK
     Route: 065
  3. PROTONIX [Concomitant]
     Dosage: UNK
     Route: 065
  4. TOPROL [Concomitant]
     Dosage: UNK
     Route: 065
  5. LISINOPRIL [Concomitant]
     Dosage: UNK
     Route: 065

REACTIONS (6)
  - Arthritis [Unknown]
  - Body height decreased [Unknown]
  - Exercise tolerance decreased [Unknown]
  - Blood calcium increased [Unknown]
  - Arthralgia [Not Recovered/Not Resolved]
  - Pain in extremity [Not Recovered/Not Resolved]
